FAERS Safety Report 5047286-0 (Version None)
Quarter: 2006Q3

REPORT INFORMATION
  Report Type: 
  Country: None (occurrence: None)
  Receive Date: 20060703
  Receipt Date: 20060615
  Transmission Date: 20061208
  Serious: Yes (Life-Threatening, Hospitalization)
  Sender: FDA-Public Use
  Company Number: 226713

PATIENT
  Sex: Female
  Weight: 60 kg

DRUGS (5)
  1. AVASTIN [Suspect]
     Dosage: INTRAVENOUS
     Route: 042
     Dates: start: 20060420, end: 20060420
  2. ELOXATIN [Suspect]
     Dosage: INTRAVENOUS
     Route: 042
     Dates: start: 20060419, end: 20060420
  3. FLUOROURACIL [Suspect]
     Dosage: INTRAVENOUS
     Route: 042
     Dates: start: 20060419, end: 20060420
  4. BUSCAPINA (SCOPOLAMINE BUTYLBROMIDE) [Concomitant]
  5. OCTREOTIDE ACETATE [Concomitant]

REACTIONS (6)
  - CACHEXIA [None]
  - DIARRHOEA [None]
  - HYPERCATABOLISM [None]
  - ILEUS PARALYTIC [None]
  - NAUSEA [None]
  - VOMITING [None]
